FAERS Safety Report 10646748 (Version 2)
Quarter: 2014Q4

REPORT INFORMATION
  Report Type: Spontaneous
  Country: FR (occurrence: FR)
  Receive Date: 20141211
  Receipt Date: 20141216
  Transmission Date: 20150529
  Serious: Yes (Hospitalization, Other)
  Sender: FDA-Public Use
  Company Number: FR-PFIZER INC-2014337910

PATIENT
  Age: 50 Year
  Sex: Male

DRUGS (12)
  1. DIVARIUS [Suspect]
     Active Substance: PAROXETINE MESYLATE
     Dosage: 20 MG, 3X/DAY
     Route: 048
  2. ACICLOVIR [Concomitant]
     Active Substance: ACYCLOVIR
     Dosage: 800 MG, 1X/DAY
  3. EFFEXOR LP [Suspect]
     Active Substance: VENLAFAXINE HYDROCHLORIDE
     Dosage: 75 MG, DAILY
     Route: 048
  4. PRAZEPAM [Suspect]
     Active Substance: PRAZEPAM
     Dosage: 400 MG, SINGLE
     Route: 048
     Dates: start: 20141112, end: 20141112
  5. ATARAX [Suspect]
     Active Substance: HYDROXYZINE\HYDROXYZINE HYDROCHLORIDE
     Dosage: 750 MG, SINGLE
     Route: 048
     Dates: start: 20141112, end: 20141112
  6. EFFEXOR LP [Suspect]
     Active Substance: VENLAFAXINE HYDROCHLORIDE
     Dosage: 1500 MG, SINGLE
     Route: 048
     Dates: start: 20141112, end: 20141112
  7. MELATONIN [Concomitant]
     Active Substance: MELATONIN
     Dosage: UNK
  8. PRAZEPAM [Suspect]
     Active Substance: PRAZEPAM
     Dosage: 20 MG, 2X/DAY
     Route: 048
  9. DIVARIUS [Suspect]
     Active Substance: PAROXETINE MESYLATE
     Dosage: 280 MG, SINGLE
     Route: 048
     Dates: start: 20141112, end: 20141112
  10. ATARAX [Suspect]
     Active Substance: HYDROXYZINE\HYDROXYZINE HYDROCHLORIDE
     Dosage: 100 MG, 1X/DAY
     Route: 048
  11. ABILIFY [Concomitant]
     Active Substance: ARIPIPRAZOLE
     Dosage: 10 MG, UNK
  12. MEPRONIZINE [Suspect]
     Active Substance: ACEPROMETAZINE MALEATE\MEPROBAMATE
     Dosage: 3 DF, SINGLE
     Route: 048
     Dates: start: 20141112, end: 20141112

REACTIONS (4)
  - Sinusitis [Unknown]
  - Hypotonia [Unknown]
  - Toxicity to various agents [Unknown]
  - Coma [Recovered/Resolved]

NARRATIVE: CASE EVENT DATE: 20141112
